FAERS Safety Report 14052431 (Version 2)
Quarter: 2017Q4

REPORT INFORMATION
  Report Type: Spontaneous
  Country: US (occurrence: US)
  Receive Date: 20171006
  Receipt Date: 20171010
  Transmission Date: 20180321
  Serious: No
  Sender: FDA-Public Use
  Company Number: US-PFIZER INC-2017430913

PATIENT
  Age: 66 Year
  Sex: Female
  Weight: 58.97 kg

DRUGS (6)
  1. AMLODIPINE [Concomitant]
     Active Substance: AMLODIPINE BESYLATE
     Indication: HYPERTENSION
     Dosage: 2.5 MG, 1X/DAY
     Route: 048
  2. VITAMIN B12 [Concomitant]
     Active Substance: CYANOCOBALAMIN
     Indication: VITAMIN SUPPLEMENTATION
     Dosage: 1000 MG, 1X/DAY (500MG 2 BY MOUTH ONCE A DAY)
     Route: 048
  3. FOLIC ACID. [Concomitant]
     Active Substance: FOLIC ACID
     Indication: VITAMIN SUPPLEMENTATION
     Dosage: 1 MG, 1X/DAY
     Route: 048
  4. SUTENT [Suspect]
     Active Substance: SUNITINIB MALATE
     Indication: PANCREATIC NEOPLASM
     Dosage: 50 MG, UNK
     Dates: start: 201703
  5. SUTENT [Suspect]
     Active Substance: SUNITINIB MALATE
     Dosage: 37.5 MG, CYCLIC (37.5MG CAPSULE 1 BY MOUTH 2 WEEKS ON, 1 WEEK OFF)
     Route: 048
     Dates: end: 20170911
  6. ZOCOR [Concomitant]
     Active Substance: SIMVASTATIN
     Indication: BLOOD CHOLESTEROL ABNORMAL
     Dosage: 20 MG, DAILY
     Route: 048

REACTIONS (6)
  - Infection [Unknown]
  - Red blood cell count abnormal [Unknown]
  - Diarrhoea [Recovered/Resolved]
  - Cough [Recovering/Resolving]
  - Dehydration [Unknown]
  - Asthenia [Unknown]

NARRATIVE: CASE EVENT DATE: 201708
